FAERS Safety Report 12142399 (Version 1)
Quarter: 2016Q1

REPORT INFORMATION
  Report Type: Spontaneous
  Country: US (occurrence: US)
  Receive Date: 20160303
  Receipt Date: 20160303
  Transmission Date: 20160526
  Serious: Yes (Life-Threatening, Hospitalization, Other)
  Sender: FDA-Public Use
  Company Number: US-CELGENEUS-163-21880-13121431

PATIENT
  Age: 56 Year
  Sex: Male

DRUGS (2)
  1. ASA [Concomitant]
     Active Substance: ASPIRIN
     Indication: PRODUCT USED FOR UNKNOWN INDICATION
     Route: 065
  2. REVLIMID [Suspect]
     Active Substance: LENALIDOMIDE
     Indication: PLASMA CELL MYELOMA
     Dosage: 25 MILLIGRAM
     Route: 048
     Dates: start: 20130206

REACTIONS (4)
  - Cerebrovascular accident [Recovered/Resolved]
  - Hypoacusis [Unknown]
  - Pulmonary thrombosis [Recovered/Resolved]
  - Embolic stroke [Recovered/Resolved]

NARRATIVE: CASE EVENT DATE: 20130601
